FAERS Safety Report 23879787 (Version 1)
Quarter: 2024Q2

REPORT INFORMATION
  Report Type: Spontaneous
  Country: US (occurrence: None)
  Receive Date: 20240520
  Receipt Date: 20240520
  Transmission Date: 20240716
  Serious: No
  Sender: FDA-Public Use
  Company Number: None

PATIENT

DRUGS (2)
  1. FLUPHENAZINE HYDROCHLORIDE [Suspect]
     Active Substance: FLUPHENAZINE HYDROCHLORIDE
  2. PROPOFOL [Suspect]
     Active Substance: PROPOFOL

REACTIONS (3)
  - Transcription medication error [None]
  - Product selection error [None]
  - Product name confusion [None]
